FAERS Safety Report 25536302 (Version 1)
Quarter: 2025Q3

REPORT INFORMATION
  Report Type: Report from Study
  Country: US (occurrence: US)
  Receive Date: 20250709
  Receipt Date: 20250709
  Transmission Date: 20251021
  Serious: No
  Sender: TG THERAPEUTICS
  Company Number: US-TG THERAPEUTICS INC.-TGT005273

PATIENT

DRUGS (3)
  1. UBLITUXIMAB [Suspect]
     Active Substance: UBLITUXIMAB
     Indication: Multiple sclerosis
     Route: 042
     Dates: start: 20240422, end: 20240422
  2. UBLITUXIMAB [Suspect]
     Active Substance: UBLITUXIMAB
     Route: 042
     Dates: start: 20241122, end: 20241122
  3. UBLITUXIMAB [Suspect]
     Active Substance: UBLITUXIMAB
     Route: 042
     Dates: start: 20250520, end: 20250520

REACTIONS (17)
  - Multiple sclerosis relapse [Unknown]
  - Aphonia [Recovered/Resolved]
  - Somnolence [Unknown]
  - Pain [Unknown]
  - Tremor [Unknown]
  - Musculoskeletal stiffness [Unknown]
  - Asthma [Unknown]
  - Fatigue [Unknown]
  - Muscle spasms [Unknown]
  - Head discomfort [Unknown]
  - Muscle tightness [Unknown]
  - Neuralgia [Unknown]
  - Vision blurred [Unknown]
  - Crepitations [Unknown]
  - Discomfort [Unknown]
  - Multiple sclerosis [Unknown]
  - Product dose omission issue [Unknown]

NARRATIVE: CASE EVENT DATE: 20250520
